FAERS Safety Report 14494781 (Version 1)
Quarter: 2018Q1

REPORT INFORMATION
  Report Type: Spontaneous
  Country: CN (occurrence: CN)
  Receive Date: 20180206
  Receipt Date: 20180206
  Transmission Date: 20180509
  Serious: Yes (Hospitalization)
  Sender: FDA-Public Use
  Company Number: PHHY2018CN017839

PATIENT
  Age: 83 Year
  Sex: Female
  Weight: 45 kg

DRUGS (5)
  1. FLUNARIZINE HYDROCHLORIDE [Concomitant]
     Active Substance: FLUNARIZINE HYDROCHLORIDE
     Indication: HEADACHE
     Dosage: 5 MG, QD
     Route: 048
     Dates: start: 20171113, end: 20171128
  2. IBUPROFEN. [Concomitant]
     Active Substance: IBUPROFEN
     Indication: HEADACHE
     Dosage: 0.3 G, BID
     Route: 048
     Dates: start: 20171113, end: 20171128
  3. GASTRODIN [Concomitant]
     Indication: PRODUCT USED FOR UNKNOWN INDICATION
     Route: 065
  4. TEGRETOL [Suspect]
     Active Substance: CARBAMAZEPINE
     Indication: VASCULAR HEADACHE
     Dosage: 0.1 G, BID
     Route: 048
     Dates: start: 20171116, end: 20171128
  5. MECOBALAMIN [Concomitant]
     Active Substance: METHYLCOBALAMIN
     Indication: NEURODEGENERATIVE DISORDER
     Dosage: 0.5 MG, TID
     Route: 048
     Dates: start: 20171113, end: 20171128

REACTIONS (4)
  - Pruritus [Recovering/Resolving]
  - Eye disorder [Recovering/Resolving]
  - Drug eruption [Recovering/Resolving]
  - Mouth ulceration [Recovering/Resolving]

NARRATIVE: CASE EVENT DATE: 20171124
